FAERS Safety Report 17085370 (Version 2)
Quarter: 2020Q1

REPORT INFORMATION
  Report Type: Spontaneous
  Country: PT (occurrence: PT)
  Receive Date: 20191128
  Receipt Date: 20200213
  Transmission Date: 20200409
  Serious: Yes (Disabling)
  Sender: FDA-Public Use
  Company Number: PT-AUROBINDO-AUR-APL-2019-074048

PATIENT
  Age: 33 Year
  Sex: Male
  Weight: 62 kg

DRUGS (1)
  1. LEVOFLOXACIN GENERIS PHAR FILM COATED TABLET [Suspect]
     Active Substance: LEVOFLOXACIN
     Indication: STAPHYLOCOCCAL INFECTION
     Dosage: 1500 MILLIGRAM, ONCE A DAY (750MG DE 12H/12H)
     Route: 048
     Dates: start: 20191101

REACTIONS (5)
  - Nausea [Recovered/Resolved]
  - Myalgia [Recovered/Resolved]
  - Malaise [Recovered/Resolved]
  - Pain in extremity [Recovered/Resolved]
  - Vomiting [Recovered/Resolved]

NARRATIVE: CASE EVENT DATE: 20191102
